FAERS Safety Report 8461647-9 (Version None)
Quarter: 2012Q2

REPORT INFORMATION
  Report Type: 
  Country: None (occurrence: None)
  Receive Date: 20120625
  Receipt Date: 20120621
  Transmission Date: 20120825
  Serious: Yes (Other)
  Sender: FDA-Public Use
  Company Number: PHHY2012UA053142

PATIENT
  Sex: Female

DRUGS (2)
  1. CHEMOTHERAPEUTICS NOS [Concomitant]
  2. ZOMETA [Suspect]
     Dosage: 4 MG, ONCE A MONTH
     Route: 042
     Dates: end: 20120401

REACTIONS (2)
  - NECROSIS [None]
  - PAIN IN JAW [None]
